FAERS Safety Report 17441076 (Version 2)
Quarter: 2020Q1

REPORT INFORMATION
  Report Type: Spontaneous
  Country: FR (occurrence: FR)
  Receive Date: 20200220
  Receipt Date: 20200226
  Transmission Date: 20200409
  Serious: Yes (Life-Threatening, Disabling, Other)
  Sender: FDA-Public Use
  Company Number: FR-OTSUKA-2020_004977

PATIENT
  Age: 58 Year
  Sex: Female

DRUGS (2)
  1. THIOTEPA. [Suspect]
     Active Substance: THIOTEPA
     Indication: B-CELL LYMPHOMA
     Dosage: UNK
     Route: 042
     Dates: start: 20190325
  2. BUSILVEX [Suspect]
     Active Substance: BUSULFAN
     Indication: B-CELL LYMPHOMA
     Dosage: UNK
     Route: 042
     Dates: start: 20190325

REACTIONS (2)
  - Off label use [Unknown]
  - Pulmonary arterial hypertension [Recovered/Resolved with Sequelae]

NARRATIVE: CASE EVENT DATE: 20190714
